FAERS Safety Report 10984984 (Version 4)
Quarter: 2015Q3

REPORT INFORMATION
  Report Type: Spontaneous
  Country: BR (occurrence: BR)
  Receive Date: 20150403
  Receipt Date: 20150703
  Transmission Date: 20151125
  Serious: Yes (Life-Threatening, Hospitalization, Disabling, Other)
  Sender: FDA-Public Use
  Company Number: BR-ASTRAZENECA-2015SE29383

PATIENT
  Age: 88 Year
  Sex: Male
  Weight: 54 kg

DRUGS (7)
  1. BRILINTA [Suspect]
     Active Substance: TICAGRELOR
     Indication: ARTERIAL OCCLUSIVE DISEASE
     Route: 048
     Dates: start: 20150325, end: 201504
  2. CRESTOR [Suspect]
     Active Substance: ROSUVASTATIN CALCIUM
     Route: 048
     Dates: start: 2010
  3. GLIFAGE [Suspect]
     Active Substance: METFORMIN HYDROCHLORIDE
     Indication: GLUCOSE TOLERANCE IMPAIRED
     Dosage: 500MG DAILY
     Route: 048
     Dates: end: 20150421
  4. ASA [Suspect]
     Active Substance: ASPIRIN
     Indication: ANTICOAGULANT THERAPY
     Dosage: DAILY
     Route: 048
     Dates: end: 201503
  5. VASTAREL [Concomitant]
     Active Substance: TRIMETAZIDINE DIHYDROCHLORIDE
  6. GLIFAGE [Suspect]
     Active Substance: METFORMIN HYDROCHLORIDE
     Indication: GLUCOSE TOLERANCE IMPAIRED
     Dosage: DAILY
     Route: 048
  7. ASA [Suspect]
     Active Substance: ASPIRIN
     Indication: ANTICOAGULANT THERAPY
     Dosage: TWO TIMES A DAY
     Route: 048
     Dates: end: 201503

REACTIONS (11)
  - Cerebrovascular accident [Recovered/Resolved with Sequelae]
  - Amnesia [Recovered/Resolved]
  - Coronary artery occlusion [Recovered/Resolved]
  - Gait disturbance [Recovering/Resolving]
  - Haemorrhage [Recovered/Resolved]
  - Hyponatraemia [Recovered/Resolved]
  - Faecal incontinence [Recovered/Resolved]
  - Speech disorder [Recovering/Resolving]
  - Urinary incontinence [Recovered/Resolved]
  - Feeding disorder [Recovered/Resolved]
  - Confusional state [Recovered/Resolved]

NARRATIVE: CASE EVENT DATE: 2015
